FAERS Safety Report 6733944-6 (Version None)
Quarter: 2010Q2

REPORT INFORMATION
  Report Type: 
  Country: None (occurrence: None)
  Receive Date: 20100520
  Receipt Date: 20100510
  Transmission Date: 20101027
  Serious: Yes (Other)
  Sender: FDA-Public Use
  Company Number: KR-PFIZER INC-2010058170

PATIENT
  Sex: Male

DRUGS (1)
  1. CARDURA [Suspect]
     Indication: POLLAKIURIA
     Dosage: 4 MG, IN THE EVENING AT BEDTIME
     Route: 048

REACTIONS (2)
  - INTESTINAL OPERATION [None]
  - WRONG TECHNIQUE IN DRUG USAGE PROCESS [None]
